FAERS Safety Report 8364174-2 (Version None)
Quarter: 2012Q1

REPORT INFORMATION
  Report Type: 
  Country: None (occurrence: None)
  Receive Date: 20120323
  Receipt Date: 20111109
  Transmission Date: 20120608
  Serious: Yes (Hospitalization)
  Sender: FDA-Public Use
  Company Number: 163-21880-11111451

PATIENT
  Age: 85 Year
  Sex: Female

DRUGS (9)
  1. TYLENL ARTHRITIS (PARACETAMOL) [Concomitant]
  2. ASPIRIN [Concomitant]
  3. VITAMIN B-12 CR (CYANOCOBALAMIN) [Concomitant]
  4. REVLIMID [Suspect]
     Indication: MULTIPLE MYELOMA
     Dosage: 10 MG, 21, PO
     Route: 048
     Dates: start: 20111014
  5. DEXAMETHASONE [Concomitant]
  6. BISACODYL [Concomitant]
  7. ASCORBIC ACID [Concomitant]
  8. FERROUS SULFATE TAB [Concomitant]
  9. AMLODIPINE BESYLATE [Concomitant]

REACTIONS (2)
  - RED BLOOD CELL COUNT DECREASED [None]
  - PLATELET COUNT DECREASED [None]
